FAERS Safety Report 11906758 (Version 1)
Quarter: 2016Q1

REPORT INFORMATION
  Report Type: Spontaneous
  Country: US (occurrence: None)
  Receive Date: 20160108
  Receipt Date: 20160108
  Transmission Date: 20160526
  Serious: No
  Sender: FDA-Public Use
  Company Number: None

PATIENT
  Age: 64 Year
  Sex: Male

DRUGS (1)
  1. AMPYRA [Suspect]
     Active Substance: DALFAMPRIDINE
     Indication: MULTIPLE SCLEROSIS
     Route: 048
     Dates: start: 20151210

REACTIONS (3)
  - Monocyte count abnormal [None]
  - Bilirubin conjugated abnormal [None]
  - Urine analysis abnormal [None]

NARRATIVE: CASE EVENT DATE: 20151214
